FAERS Safety Report 8122192-3 (Version None)
Quarter: 2012Q1

REPORT INFORMATION
  Report Type: 
  Country: None (occurrence: None)
  Receive Date: 20120208
  Receipt Date: 20120130
  Transmission Date: 20120608
  Serious: Yes (Disabling, Other)
  Sender: FDA-Public Use
  Company Number: US-BAYER-2011-091619

PATIENT
  Age: 31 Year
  Sex: Female
  Weight: 107 kg

DRUGS (4)
  1. KENALOG [Concomitant]
     Indication: ECZEMA
  2. CELEXA [Concomitant]
     Indication: ANXIETY
     Dosage: 40 MG, QD (PER DAY)
     Dates: start: 20100601
  3. YAZ [Suspect]
     Dosage: UNK
     Dates: start: 20080901, end: 20090401
  4. KENALOG [Concomitant]
     Indication: DERMATITIS
     Dosage: 0.1 %, BID (2 TIMES PER DAY)
     Route: 061
     Dates: start: 20100501

REACTIONS (6)
  - CHOLECYSTITIS CHRONIC [None]
  - GALLBLADDER DISORDER [None]
  - INJURY [None]
  - BILIARY COLIC [None]
  - PAIN [None]
  - DEFORMITY [None]
